FAERS Safety Report 16557146 (Version 1)
Quarter: 2019Q3

REPORT INFORMATION
  Report Type: Spontaneous
  Country: US (occurrence: US)
  Receive Date: 20190711
  Receipt Date: 20190711
  Transmission Date: 20191004
  Serious: Yes (Other)
  Sender: FDA-Public Use
  Company Number: US-PFIZER INC-2019292686

PATIENT
  Age: 70 Year
  Sex: Female
  Weight: 49.9 kg

DRUGS (5)
  1. HYDROCODONE [Concomitant]
     Active Substance: HYDROCODONE
     Indication: PAIN
     Dosage: 3.5 DF, DAILY (-325 MG 2 TABLETS A DAY; 1 IN THE MORNING AND HALF A TABLET AT NIGHT.  )
  2. TYLENOL EXTRA STRENGTH [Concomitant]
     Active Substance: ACETAMINOPHEN
     Dosage: 1000 MG, 2X/DAY
  3. PREDNISONE. [Concomitant]
     Active Substance: PREDNISONE
     Indication: RHEUMATOID ARTHRITIS
     Dosage: 7 MG, 1X/DAY [7 MG BY MOUTH A DAY; TWO 1 MG TABLETS AND ONE 5 MG TABLET DAILY.]
     Route: 048
  4. PREDNISONE. [Concomitant]
     Active Substance: PREDNISONE
     Dosage: 7 MG, 1X/DAY [7 MG BY MOUTH A DAY; TWO 1 MG TABLETS AND ONE 5 MG TABLET DAILY.]
     Route: 048
  5. XELJANZ XR [Suspect]
     Active Substance: TOFACITINIB CITRATE
     Indication: RHEUMATOID ARTHRITIS
     Dosage: 11 MG, 1X/DAY
     Route: 048
     Dates: start: 2019

REACTIONS (3)
  - Blindness [Not Recovered/Not Resolved]
  - Memory impairment [Not Recovered/Not Resolved]
  - Cerebrovascular accident [Not Recovered/Not Resolved]

NARRATIVE: CASE EVENT DATE: 201903
